FAERS Safety Report 25156205 (Version 1)
Quarter: 2025Q2

REPORT INFORMATION
  Report Type: Spontaneous
  Country: US (occurrence: US)
  Receive Date: 20250403
  Receipt Date: 20250403
  Transmission Date: 20250716
  Serious: No
  Sender: EISAI
  Company Number: US-Eisai Medical Research-EC-2023-145874

PATIENT
  Age: 79 Year
  Sex: Male

DRUGS (5)
  1. LEQEMBI [Suspect]
     Active Substance: LECANEMAB-IRMB
     Indication: Dementia Alzheimer^s type
  2. DONEPEZIL [Concomitant]
     Active Substance: DONEPEZIL
  3. SIMVASTATIN [Concomitant]
     Active Substance: SIMVASTATIN
  4. TRAZODONE [Concomitant]
     Active Substance: TRAZODONE HYDROCHLORIDE
     Indication: Anxiety
  5. VITAMIN B12 [Concomitant]
     Active Substance: CYANOCOBALAMIN

REACTIONS (3)
  - Chills [Recovered/Resolved]
  - Feeling hot [Recovered/Resolved]
  - Hyperhidrosis [Recovered/Resolved]

NARRATIVE: CASE EVENT DATE: 20230627
